FAERS Safety Report 5093231-1 (Version None)
Quarter: 2006Q3

REPORT INFORMATION
  Report Type: 
  Country: None (occurrence: None)
  Receive Date: 20060830
  Receipt Date: 20060428
  Transmission Date: 20061208
  Serious: Yes (Hospitalization, Disabling)
  Sender: FDA-Public Use
  Company Number: US-BOEHRINGER INGELHEIM PHARMACEUTICALS, INC.-2006-BP-04844BP

PATIENT
  Age: 57 Year
  Sex: Female
  Weight: 96.62 kg

DRUGS (9)
  1. COMBIVENT [Suspect]
     Indication: CHRONIC OBSTRUCTIVE PULMONARY DISEASE
     Route: 055
     Dates: start: 20000101
  2. COMBIVENT [Suspect]
     Route: 055
  3. ALPRAZOLAM [Concomitant]
  4. ISOSORBIDE DINITRATE [Concomitant]
  5. HYDROCHLOROTHIAZIDE [Concomitant]
  6. PROVENTIL [Concomitant]
  7. LASIX [Concomitant]
     Route: 048
  8. XANAX [Concomitant]
     Route: 048
  9. OXYGEN [Concomitant]
     Route: 055

REACTIONS (6)
  - PAROSMIA [None]
  - PHARMACEUTICAL PRODUCT COMPLAINT [None]
  - PHARYNGEAL OEDEMA [None]
  - PNEUMONIA [None]
  - RESPIRATORY FAILURE [None]
  - THROAT TIGHTNESS [None]
